FAERS Safety Report 6162947-8 (Version None)
Quarter: 2009Q2

REPORT INFORMATION
  Report Type: 
  Country: None (occurrence: None)
  Receive Date: 20090420
  Receipt Date: 20090406
  Transmission Date: 20091009
  Serious: Yes (Death, Life-Threatening, Other)
  Sender: FDA-Public Use
  Company Number: 2009AP001368

PATIENT
  Age: 40 Year
  Sex: Male

DRUGS (5)
  1. CYCLOSPORINE [Suspect]
     Indication: IMMUNOSUPPRESSANT DRUG THERAPY
  2. PREDNISONE [Suspect]
     Indication: IMMUNOSUPPRESSANT DRUG THERAPY
  3. SIROLIMUS [Suspect]
     Indication: IMMUNOSUPPRESSANT DRUG THERAPY
  4. INTERFERON ALFA-2B [Suspect]
     Indication: HEPATITIS C
     Dosage: ;TIW;
  5. RIBAVIRIN [Suspect]
     Indication: HEPATITIS C
     Dosage: ;QD;

REACTIONS (16)
  - BLOOD ALBUMIN DECREASED [None]
  - CAVERNOUS SINUS THROMBOSIS [None]
  - DIABETES MELLITUS [None]
  - DISEASE RECURRENCE [None]
  - HAEMOLYTIC ANAEMIA [None]
  - HEADACHE [None]
  - HEPATIC FIBROSIS [None]
  - HEPATITIS C [None]
  - LIVER TRANSPLANT REJECTION [None]
  - NEOPLASM MALIGNANT [None]
  - NEUTROPENIA [None]
  - ORBITAL APEX SYNDROME [None]
  - PLATELET COUNT DECREASED [None]
  - RENAL FAILURE [None]
  - WHITE BLOOD CELL COUNT DECREASED [None]
  - ZYGOMYCOSIS [None]
